FAERS Safety Report 21186888 (Version 1)
Quarter: 2022Q3

REPORT INFORMATION
  Report Type: Spontaneous
  Country: TW (occurrence: TW)
  Receive Date: 20220808
  Receipt Date: 20220808
  Transmission Date: 20221027
  Serious: Yes (Death)
  Sender: FDA-Public Use
  Company Number: TW-BAYER-2022A108710

PATIENT

DRUGS (2)
  1. STIVARGA [Suspect]
     Active Substance: REGORAFENIB
     Indication: Colorectal cancer metastatic
     Dosage: UNK
     Dates: start: 20191231, end: 20200529
  2. FLUOROURACIL;IRINOTECAN;OXALIPLATIN [Concomitant]
     Indication: Colorectal cancer metastatic
     Dosage: 240 MG

REACTIONS (1)
  - Colorectal cancer metastatic [Fatal]
